FAERS Safety Report 19475773 (Version 2)
Quarter: 2021Q3

REPORT INFORMATION
  Report Type: Report from Study
  Country: IT (occurrence: IT)
  Receive Date: 20210630
  Receipt Date: 20210707
  Transmission Date: 20211014
  Serious: Yes (Death)
  Sender: FDA-Public Use
  Company Number: IT-PFIZER INC-2021705186

PATIENT
  Age: 89 Year
  Sex: Male

DRUGS (15)
  1. ENOXAPARIN [Concomitant]
     Active Substance: ENOXAPARIN
     Dosage: UNK
  2. AZITHROMYCIN ANHYDROUS. [Suspect]
     Active Substance: AZITHROMYCIN ANHYDROUS
     Indication: COVID-19
     Dosage: 500 MG, 1X/DAY FIRST DAY
     Route: 065
     Dates: start: 2020, end: 2020
  3. AZITHROMYCIN ANHYDROUS. [Interacting]
     Active Substance: AZITHROMYCIN ANHYDROUS
     Dosage: 250 MG, 1X/DAY 3?4 DAYS
     Route: 065
     Dates: start: 2020, end: 2020
  4. PROMAZINE [Concomitant]
     Active Substance: PROMAZINE
     Dosage: UNK
  5. PIPERACILLIN AND TAZOBACTAM [Concomitant]
     Active Substance: PIPERACILLIN SODIUM\TAZOBACTAM SODIUM
     Dosage: UNK
  6. HYDROXYCHLOROQUINE [Interacting]
     Active Substance: HYDROXYCHLOROQUINE
     Indication: COVID-19
     Dosage: 800 MG, 1X/DAY FOR THE FIRST DAY
     Route: 065
     Dates: start: 2020, end: 2020
  7. HYDROXYCHLOROQUINE [Interacting]
     Active Substance: HYDROXYCHLOROQUINE
     Dosage: 400 MG, 1X/DAY FOR 5?7 DAYS,
     Route: 065
     Dates: start: 2020, end: 2020
  8. PANTOPRAZOLE [Concomitant]
     Active Substance: PANTOPRAZOLE
  9. CLOPIDOGREL [Concomitant]
     Active Substance: CLOPIDOGREL BISULFATE
     Dosage: UNK
  10. QUETIAPINE. [Concomitant]
     Active Substance: QUETIAPINE
     Dosage: UNK
  11. CITALOPRAM [Suspect]
     Active Substance: CITALOPRAM HYDROBROMIDE
     Indication: COVID-19
     Dosage: UNK
     Route: 065
     Dates: start: 2020, end: 2020
  12. OLANZAPINE. [Concomitant]
     Active Substance: OLANZAPINE
     Dosage: UNK
  13. BISOPROLOL [Concomitant]
     Active Substance: BISOPROLOL
     Dosage: UNK
  14. LOPINAVIR/RITONAVIR [Interacting]
     Active Substance: LOPINAVIR\RITONAVIR
     Indication: COVID-19
     Dosage: 400/100 MG, 2X/DAY FOR 7?14 DAYS
     Route: 048
     Dates: start: 2020, end: 2020
  15. ATORVASTATIN [Concomitant]
     Active Substance: ATORVASTATIN
     Dosage: UNK

REACTIONS (2)
  - Electrocardiogram QT prolonged [Fatal]
  - Drug interaction [Fatal]

NARRATIVE: CASE EVENT DATE: 2020
